FAERS Safety Report 7645842-4 (Version None)
Quarter: 2011Q3

REPORT INFORMATION
  Report Type: 
  Country: None (occurrence: None)
  Receive Date: 20110729
  Receipt Date: 20110718
  Transmission Date: 20111222
  Serious: Yes (Other)
  Sender: FDA-Public Use
  Company Number: PHHY2011AU65664

PATIENT
  Sex: Male

DRUGS (4)
  1. KEPPRA [Concomitant]
     Dosage: 500 MG, UNK
  2. LEVETIRACETAM [Concomitant]
     Dosage: UNK UKN, BID
  3. TEGRETOL [Suspect]
     Indication: CONVULSION
     Dosage: 100 MG, UNK
  4. TEGRETOL [Suspect]
     Dosage: 200 MG, BID

REACTIONS (4)
  - WEIGHT INCREASED [None]
  - OEDEMA PERIPHERAL [None]
  - PRURITUS [None]
  - RASH ERYTHEMATOUS [None]
